FAERS Safety Report 12510329 (Version 2)
Quarter: 2016Q3

REPORT INFORMATION
  Report Type: Spontaneous
  Country: US (occurrence: US)
  Receive Date: 20160629
  Receipt Date: 20160913
  Transmission Date: 20161109
  Serious: No
  Sender: FDA-Public Use
  Company Number: US-RB-079567-15

PATIENT
  Age: 55 Year
  Sex: Male

DRUGS (5)
  1. MUCINEX [Suspect]
     Active Substance: GUAIFENESIN
     Indication: PRODUCT USED FOR UNKNOWN INDICATION
     Dosage: 600MG. PATIENT TOOK  2 TABLETS EVERY 2-4 HOURS,FREQUENCY UNK
     Route: 065
     Dates: start: 20150711
  2. MUCINEX [Suspect]
     Active Substance: GUAIFENESIN
     Dosage: 600MG. PATIENT TOOK 2 TABLETS EVERY 2-4 HOURS,FREQUENCY UNK
     Route: 065
     Dates: start: 20150713
  3. MUCINEX [Suspect]
     Active Substance: GUAIFENESIN
     Dosage: 600MG. PATIENT TOOK 2 TABLETS EVERY 2-4 HOURS,FREQUENCY UNK
     Route: 065
     Dates: start: 20150723
  4. PROMETHAZINE [Concomitant]
     Active Substance: PROMETHAZINE\PROMETHAZINE HYDROCHLORIDE
     Indication: BRONCHITIS
     Dosage: DOSE UNK, UNITS UNK, FREQUENCY UNK
     Route: 065
  5. VENTOLIN [Concomitant]
     Active Substance: ALBUTEROL SULFATE
     Indication: BRONCHITIS
     Dosage: DOSE UNK, UNITS UNK, FREQUENCY UNK
     Route: 065

REACTIONS (2)
  - Inappropriate schedule of drug administration [Unknown]
  - No adverse event [Unknown]

NARRATIVE: CASE EVENT DATE: 20150711
